FAERS Safety Report 10644304 (Version 4)
Quarter: 2015Q3

REPORT INFORMATION
  Report Type: Report from Study
  Country: US (occurrence: US)
  Receive Date: 20141210
  Receipt Date: 20150924
  Transmission Date: 20151125
  Serious: Yes (Other)
  Sender: FDA-Public Use
  Company Number: US-SA-2014SA167182

PATIENT
  Age: 69 Year
  Sex: Female

DRUGS (6)
  1. LANTUS SOLOSTAR [Suspect]
     Active Substance: INSULIN GLARGINE
     Indication: TYPE 1 DIABETES MELLITUS
     Dosage: DOSE: 20 UNITS OF LANTUS IN AM, AT NIGHT 50 UNITS OF LANTUS
     Route: 065
  2. LANTUS SOLOSTAR [Suspect]
     Active Substance: INSULIN GLARGINE
     Indication: TYPE 1 DIABETES MELLITUS
     Dosage: DOSE: 20 U AM/ 45 U PM
     Route: 065
  3. NOVOLOG [Concomitant]
     Active Substance: INSULIN ASPART
     Indication: TYPE 1 DIABETES MELLITUS
     Dosage: THREE SHOTS A DAY?12 UNITS IN AM, 12 UNITS IN LUNCH AND THEN SLIDING SCALE WITH NOVALOG AT NIGHT
  4. LANTUS SOLOSTAR [Suspect]
     Active Substance: INSULIN GLARGINE
     Indication: TYPE 1 DIABETES MELLITUS
     Dosage: MORNING:20 UNITS IN THE MORNING AND 35 UNITS AT NIGHT
     Route: 065
  5. LANTUS SOLOSTAR [Suspect]
     Active Substance: INSULIN GLARGINE
     Indication: TYPE 1 DIABETES MELLITUS
     Dosage: DOSE:62 UNIT(S)
     Route: 065
  6. SOLOSTAR [Concomitant]
     Active Substance: DEVICE
     Indication: TYPE 1 DIABETES MELLITUS

REACTIONS (5)
  - Genital disorder female [Unknown]
  - Drug administration error [Unknown]
  - Leg amputation [Unknown]
  - Thrombosis [Unknown]
  - Malaise [Unknown]
